FAERS Safety Report 23666795 (Version 1)
Quarter: 2024Q1

REPORT INFORMATION
  Report Type: Other
  Country: US (occurrence: US)
  Receive Date: 20240325
  Receipt Date: 20240325
  Transmission Date: 20240410
  Serious: Yes (Hospitalization, Other)
  Sender: FDA-Public Use
  Company Number: US-Appco Pharma LLC-2154763

PATIENT
  Age: 69 Year
  Sex: Female

DRUGS (3)
  1. SILDENAFIL [Suspect]
     Active Substance: SILDENAFIL
     Indication: Pulmonary arterial hypertension
     Route: 065
  2. MACITENTAN [Suspect]
     Active Substance: MACITENTAN
     Route: 065
  3. SELEXIPAG [Suspect]
     Active Substance: SELEXIPAG
     Route: 065

REACTIONS (1)
  - Drug ineffective [Unknown]
